FAERS Safety Report 18123999 (Version 3)
Quarter: 2020Q4

REPORT INFORMATION
  Report Type: Spontaneous
  Country: GB (occurrence: GB)
  Receive Date: 20200807
  Receipt Date: 20201216
  Transmission Date: 20210113
  Serious: Yes (Other)
  Sender: FDA-Public Use
  Company Number: GB-BAYER-2020-152801

PATIENT
  Age: 26 Year
  Sex: Female

DRUGS (2)
  1. CITALOPRAM [Concomitant]
     Active Substance: CITALOPRAM HYDROBROMIDE
     Indication: DEPRESSION
     Dosage: UNK
     Dates: start: 202005
  2. MIRENA [Suspect]
     Active Substance: LEVONORGESTREL
     Indication: MENTAL DISORDER
     Dosage: 20 ?G PER DAY, CONTINUOSLY
     Route: 015
     Dates: start: 20171110, end: 20200614

REACTIONS (12)
  - Suicidal ideation [Not Recovered/Not Resolved]
  - Bacterial vaginosis [Recovered/Resolved with Sequelae]
  - Device deposit issue [None]
  - Abortion spontaneous [None]
  - Candida infection [Recovered/Resolved with Sequelae]
  - Back pain [None]
  - Vaginal odour [Recovered/Resolved with Sequelae]
  - Off label use of device [None]
  - Drug ineffective [None]
  - Pregnancy with contraceptive device [None]
  - Device use issue [None]
  - Genital haemorrhage [None]

NARRATIVE: CASE EVENT DATE: 201902
